FAERS Safety Report 8796923 (Version 1)
Quarter: 2012Q4

REPORT INFORMATION
  Report Type: 
  Country: US (occurrence: US)
  Receive Date: 20120919
  Receipt Date: 20120919
  Transmission Date: 20130627
  Serious: No
  Sender: FDA-Public Use
  Company Number: US-VERTEX PHARMACEUTICAL INC.-AE-2012-010788

PATIENT
  Age: 49 Year
  Sex: Female

DRUGS (4)
  1. VX-950 [Suspect]
     Indication: HEPATITIS C
     Dosage: 750 mg, tid
     Route: 048
     Dates: start: 2012
  2. RIBASPHERE [Concomitant]
     Indication: HEPATITIS C
     Dosage: UNK UNK, bid
     Route: 048
     Dates: start: 2012
  3. PEGINTRON                          /01543001/ [Concomitant]
     Indication: HEPATITIS C
     Dosage: 150 ?g, UNK
     Route: 058
     Dates: start: 2012
  4. OXYCODONE / ACETAMINOPHEN [Suspect]
     Indication: PROCTALGIA
     Dosage: UNK, qd
     Route: 048
     Dates: start: 201208

REACTIONS (5)
  - Decreased appetite [Unknown]
  - Anorectal discomfort [Unknown]
  - Rectal haemorrhage [Unknown]
  - Nausea [Unknown]
  - Vomiting [Unknown]
